FAERS Safety Report 8470311-1 (Version None)
Quarter: 2012Q2

REPORT INFORMATION
  Report Type: 
  Country: None (occurrence: None)
  Receive Date: 20120627
  Receipt Date: 20120621
  Transmission Date: 20120825
  Serious: No
  Sender: FDA-Public Use
  Company Number: US-PFIZER INC-2012150485

PATIENT
  Sex: Female
  Weight: 79.365 kg

DRUGS (2)
  1. ARTHROTEC [Suspect]
     Indication: ARTHRITIS
     Dosage: TWO TABLETS IN A DAY OF 50MG/200MCG
     Route: 048
     Dates: start: 20120615, end: 20120617
  2. LISINOPRIL [Concomitant]
     Indication: HYPERTENSION
     Dosage: 5 MG, 3X/DAY
     Route: 048

REACTIONS (1)
  - RASH [None]
